FAERS Safety Report 13262393 (Version 2)
Quarter: 2017Q1

REPORT INFORMATION
  Report Type: Report from Study
  Country: None (occurrence: CA)
  Receive Date: 20170223
  Receipt Date: 20170224
  Transmission Date: 20170428
  Serious: Yes (Hospitalization)
  Sender: FDA-Public Use
  Company Number: CA-ABBVIE-17P-028-1871288-00

PATIENT
  Age: 79 Year
  Sex: Female

DRUGS (3)
  1. CEFPROZIL. [Suspect]
     Active Substance: CEFPROZIL
     Indication: SUPERINFECTION
     Route: 065
  2. HUMIRA [Suspect]
     Active Substance: ADALIMUMAB
     Indication: RHEUMATOID ARTHRITIS
     Route: 058
     Dates: start: 20150305, end: 20170206
  3. HUMIRA [Suspect]
     Active Substance: ADALIMUMAB
     Route: 058
     Dates: start: 20170216

REACTIONS (11)
  - Chills [Not Recovered/Not Resolved]
  - Pyrexia [Not Recovered/Not Resolved]
  - Superinfection [Unknown]
  - Abdominal hernia [Unknown]
  - Drug intolerance [Unknown]
  - Faecal vomiting [Unknown]
  - Nasopharyngitis [Not Recovered/Not Resolved]
  - Intestinal obstruction [Recovering/Resolving]
  - Malaise [Not Recovered/Not Resolved]
  - Arthralgia [Unknown]
  - Fatigue [Not Recovered/Not Resolved]

NARRATIVE: CASE EVENT DATE: 201701
